FAERS Safety Report 5014233-7 (Version None)
Quarter: 2006Q2

REPORT INFORMATION
  Report Type: 
  Country: None (occurrence: None)
  Receive Date: 20060414
  Receipt Date: 20060216
  Transmission Date: 20061013
  Serious: No
  Sender: FDA-Public Use
  Company Number: 2006SP000830

PATIENT
  Age: 78 Year
  Sex: Female
  Weight: 83.9154 kg

DRUGS (6)
  1. LUNESTA [Suspect]
     Indication: INSOMNIA
     Dosage: 3 MG;PRN;ORAL
     Route: 048
     Dates: start: 20050101
  2. GLIPIZIDE [Concomitant]
  3. ATORVASTATIN CALCIUM [Concomitant]
  4. SINGULAIR [Concomitant]
  5. INSULIN [Concomitant]
  6. AMBIEN [Concomitant]

REACTIONS (2)
  - DRUG INEFFECTIVE [None]
  - INITIAL INSOMNIA [None]
